FAERS Safety Report 8991273 (Version 1)
Quarter: 2012Q4

REPORT INFORMATION
  Report Type: Report from Study
  Country: CA (occurrence: CA)
  Receive Date: 20121231
  Receipt Date: 20121231
  Transmission Date: 20130627
  Serious: Yes (Other)
  Sender: FDA-Public Use
  Company Number: CA-ROCHE-1166784

PATIENT
  Age: 33 Year

DRUGS (1)
  1. OMALIZUMAB [Suspect]
     Indication: PRODUCT USED FOR UNKNOWN INDICATION
     Route: 065
     Dates: start: 20060728

REACTIONS (8)
  - Asthma [Unknown]
  - Seasonal allergy [Unknown]
  - Chest discomfort [Unknown]
  - Sinus congestion [Unknown]
  - Pulmonary congestion [Unknown]
  - Nasal congestion [Unknown]
  - Constricted affect [Unknown]
  - Fatigue [Unknown]
